FAERS Safety Report 9494089 (Version 1)
Quarter: 2013Q3

REPORT INFORMATION
  Report Type: Spontaneous
  Country: US (occurrence: None)
  Receive Date: 20130829
  Receipt Date: 20130829
  Transmission Date: 20140515
  Serious: No
  Sender: FDA-Public Use
  Company Number: None

PATIENT
  Sex: Male
  Weight: 79 kg

DRUGS (1)
  1. CISPLATIN [Suspect]

REACTIONS (8)
  - Nausea [None]
  - Vomiting [None]
  - Erythema [None]
  - Hypoaesthesia [None]
  - Swelling [None]
  - Eye swelling [None]
  - Throat tightness [None]
  - Drug hypersensitivity [None]
